FAERS Safety Report 8051864-4 (Version None)
Quarter: 2012Q1

REPORT INFORMATION
  Report Type: 
  Country: None (occurrence: None)
  Receive Date: 20120118
  Receipt Date: 20120106
  Transmission Date: 20120608
  Serious: Yes (Hospitalization, Other)
  Sender: FDA-Public Use
  Company Number: GB-ELI_LILLY_AND_COMPANY-GB201201001714

PATIENT
  Age: 32 Year

DRUGS (8)
  1. MULTI-VITAMIN [Concomitant]
     Dosage: 1 DF, QD
     Route: 048
  2. OMEPRAZOLE [Concomitant]
     Dosage: 20 MG, QD
     Route: 048
  3. THIAMINE HCL [Concomitant]
     Dosage: 100 MG, BID
     Route: 048
  4. OLANZAPINE [Suspect]
     Dosage: 15 MG, QD
     Route: 048
  5. IBUPROFEN [Concomitant]
     Dosage: 600 MG, TID
     Route: 048
  6. VITAMIN B COMPLEX CAP [Concomitant]
     Dosage: 1 DF, BID
     Route: 048
  7. ZOPICLONE [Concomitant]
     Dosage: 7.5 MG, QD
     Route: 048
  8. FLUOXETINE HYDROCHLORIDE [Suspect]
     Dosage: 40 MG, QD
     Route: 048

REACTIONS (2)
  - HAEMATEMESIS [None]
  - GASTROINTESTINAL HAEMORRHAGE [None]
